FAERS Safety Report 12949102 (Version 3)
Quarter: 2016Q4

REPORT INFORMATION
  Report Type: Report from Study
  Country: US (occurrence: US)
  Receive Date: 20161117
  Receipt Date: 20161227
  Transmission Date: 20170207
  Serious: Yes (Other)
  Sender: FDA-Public Use
  Company Number: US-CORCEPT THERAPEUTICS INC.-US-2016CRT000688

PATIENT

DRUGS (5)
  1. KORLYM [Suspect]
     Active Substance: MIFEPRISTONE
     Indication: BLOOD GLUCOSE ABNORMAL
     Dosage: 600 MG, QD
     Route: 048
     Dates: start: 201603, end: 201606
  2. KORLYM [Suspect]
     Active Substance: MIFEPRISTONE
     Indication: GLUCOSE TOLERANCE IMPAIRED
  3. KORLYM [Suspect]
     Active Substance: MIFEPRISTONE
     Indication: HYPOGLYCAEMIA
  4. KORLYM [Suspect]
     Active Substance: MIFEPRISTONE
     Indication: HYPERLIPIDAEMIA
     Dosage: 900 MG, QD
     Route: 048
     Dates: start: 201606, end: 201609
  5. KORLYM [Suspect]
     Active Substance: MIFEPRISTONE
     Indication: PITUITARY-DEPENDENT CUSHING^S SYNDROME
     Dosage: 300 MG, QD
     Route: 048
     Dates: start: 20160301, end: 201603

REACTIONS (2)
  - Endometrial hyperplasia [Recovering/Resolving]
  - Off label use [Recovered/Resolved]

NARRATIVE: CASE EVENT DATE: 201603
